FAERS Safety Report 10098957 (Version 1)
Quarter: 2014Q2

REPORT INFORMATION
  Report Type: Spontaneous
  Country: GB (occurrence: GB)
  Receive Date: 20140423
  Receipt Date: 20140423
  Transmission Date: 20141212
  Serious: Yes (Hospitalization, Other)
  Sender: FDA-Public Use
  Company Number: PHHY2014GB046047

PATIENT
  Age: 67 Year
  Sex: Male

DRUGS (19)
  1. EPLERENONE [Suspect]
     Indication: LEFT VENTRICULAR DYSFUNCTION
     Dosage: 25 MG, QD
     Route: 048
  2. RAMIPRIL [Suspect]
     Indication: LEFT VENTRICULAR DYSFUNCTION
     Dosage: 5 MG, BID
     Route: 048
  3. RAMIPRIL [Suspect]
     Dosage: HALF DOSE
  4. FUROSEMIDE [Suspect]
     Indication: LEFT VENTRICULAR DYSFUNCTION
     Dosage: 120 MG, (40 MG 2 MORNING AND ONE AT LUNCHTIME)
     Route: 048
  5. FUROSEMIDE [Suspect]
     Dosage: HALF DOSE
  6. ORAMORPH [Suspect]
     Indication: BACK PAIN
     Dosage: 10 MG, QID
     Route: 048
  7. ZOMORPH [Suspect]
     Indication: BACK PAIN
     Dosage: 30 MG, UNK
     Route: 048
  8. ZOMORPH [Suspect]
     Dosage: HALF DOSE
  9. ATORVASTATIN [Concomitant]
     Dosage: 40 MG, QD (ONE AT NIGHT)
  10. METFORMIN [Concomitant]
     Dosage: 1 G, BID
  11. NOVOMIX [Concomitant]
     Dosage: 10 IU, QD AT TEATIME
  12. WARFARIN [Concomitant]
     Dosage: UNK UKN, UNK
  13. ALLOPURINOL [Concomitant]
     Dosage: 100 MG, QD ONE AT NIGHT
  14. AMITRIPTYLINE [Concomitant]
     Dosage: 50 MG, QD ONE AT NIGHT
  15. BISOPROLOL [Concomitant]
     Dosage: 5 MG, BID
  16. DIGOXIN [Concomitant]
     Dosage: 125 UG, QD
  17. RANITIDINE [Concomitant]
     Dosage: 150 MG, BID
  18. SAXAGLIPTIN [Concomitant]
     Dosage: 5 MG, BID
  19. VICTOZA [Concomitant]
     Dosage: 1.2 MG, QD AT LUNCHTIME

REACTIONS (5)
  - Toxicity to various agents [Recovered/Resolved]
  - Renal failure acute [Recovered/Resolved]
  - Lethargy [Recovered/Resolved]
  - Escherichia sepsis [Recovered/Resolved]
  - Vomiting [Recovered/Resolved]
